FAERS Safety Report 23465619 (Version 1)
Quarter: 2024Q1

REPORT INFORMATION
  Report Type: Spontaneous
  Country: CN (occurrence: None)
  Receive Date: 20240201
  Receipt Date: 20240201
  Transmission Date: 20240410
  Serious: Yes (Other)
  Sender: FDA-Public Use
  Company Number: CN-ROCHE-3496087

PATIENT
  Age: 72 Year
  Sex: Male

DRUGS (7)
  1. POLIVY [Suspect]
     Active Substance: POLATUZUMAB VEDOTIN-PIIQ
     Indication: Diffuse large B-cell lymphoma
     Dosage: TREATMENT ON 04/AUG/2023, 25/AUG/2023, 15/SEP/2023, 06/OCT/2023, 31/OCT/2023, 22/NOV/2023
     Route: 065
  2. RITUXIMAB [Concomitant]
     Active Substance: RITUXIMAB
     Dosage: (NON-ROCHE DRUGS).  TREATMENT ON 04-AUG-2023, 25-AUG-2023, 15-SEP-2023, 06-OCT-2023, 31-OCT-2023, 22
     Route: 065
  3. CYCLOPHOSPHAMIDE [Concomitant]
     Active Substance: CYCLOPHOSPHAMIDE
  4. VINCRISTINE [Concomitant]
     Active Substance: VINCRISTINE
  5. DEXAMETHASONE [Concomitant]
     Active Substance: DEXAMETHASONE
  6. PREDNISONE [Concomitant]
     Active Substance: PREDNISONE
  7. AMIODARONE [Concomitant]
     Active Substance: AMIODARONE

REACTIONS (4)
  - Hepatic failure [Unknown]
  - Pneumonia [Unknown]
  - Neuropathy peripheral [Unknown]
  - Myelosuppression [Unknown]

NARRATIVE: CASE EVENT DATE: 20230101
